FAERS Safety Report 5694221-8 (Version None)
Quarter: 2008Q2

REPORT INFORMATION
  Report Type: 
  Country: None (occurrence: None)
  Receive Date: 20080404
  Receipt Date: 20080402
  Transmission Date: 20081010
  Serious: Yes (Hospitalization)
  Sender: FDA-Public Use
  Company Number: US-SP-2008-00950

PATIENT
  Age: 15 Year
  Sex: Female

DRUGS (4)
  1. ADACEL [Suspect]
     Indication: IMMUNISATION
     Route: 030
     Dates: start: 20080327
  2. MENACTRA [Suspect]
     Indication: IMMUNISATION
     Route: 030
     Dates: start: 20080327
  3. TUBERSOL [Suspect]
     Indication: IMMUNISATION
     Route: 023
     Dates: start: 20080327
  4. HEPATITIS A [Suspect]
     Indication: IMMUNISATION
     Route: 065
     Dates: start: 20080327

REACTIONS (5)
  - CHEST PAIN [None]
  - DYSPNOEA [None]
  - FACE OEDEMA [None]
  - HYPOAESTHESIA [None]
  - MUSCULAR WEAKNESS [None]
